FAERS Safety Report 11815658 (Version 1)
Quarter: 2015Q4

REPORT INFORMATION
  Report Type: Spontaneous
  Country: FR (occurrence: FR)
  Receive Date: 20151209
  Receipt Date: 20151209
  Transmission Date: 20160305
  Serious: Yes (Hospitalization)
  Sender: FDA-Public Use
  Company Number: FR-PFIZER INC-2015423043

PATIENT
  Age: 35 Year
  Sex: Female

DRUGS (1)
  1. ADEPAL [Suspect]
     Active Substance: ETHINYL ESTRADIOL\LEVONORGESTREL
     Indication: CONTRACEPTION
     Dosage: 1 DF (150-200 MICROGR/30-40 MICROGR), CYCLIC (21 DAYS OVER 28)
     Route: 048
     Dates: start: 2000, end: 201511

REACTIONS (7)
  - Gamma-glutamyltransferase increased [Recovering/Resolving]
  - Alanine aminotransferase increased [Recovering/Resolving]
  - Hepatic haemorrhage [Recovered/Resolved]
  - Blood alkaline phosphatase increased [Recovering/Resolving]
  - Hepatic adenoma [Recovering/Resolving]
  - Abdominal pain [Recovered/Resolved]
  - Aspartate aminotransferase increased [Recovering/Resolving]

NARRATIVE: CASE EVENT DATE: 20151108
